FAERS Safety Report 25838746 (Version 1)
Quarter: 2025Q3

REPORT INFORMATION
  Report Type: Spontaneous
  Country: EU (occurrence: EU)
  Receive Date: 20250924
  Receipt Date: 20250924
  Transmission Date: 20251020
  Serious: Yes (Life-Threatening, Hospitalization)
  Sender: CHEPLAPHARM
  Company Number: None

PATIENT
  Age: 70 Year
  Sex: Female
  Weight: 75 kg

DRUGS (71)
  1. ETOPOSIDE PHOSPHATE [Suspect]
     Active Substance: ETOPOSIDE PHOSPHATE
     Indication: Diffuse large B-cell lymphoma
     Route: 042
     Dates: start: 20250801
  2. ETOPOSIDE PHOSPHATE [Suspect]
     Active Substance: ETOPOSIDE PHOSPHATE
     Indication: Metastasis
     Route: 042
     Dates: start: 20250801
  3. ETOPOSIDE PHOSPHATE [Suspect]
     Active Substance: ETOPOSIDE PHOSPHATE
     Indication: Metastases to central nervous system
     Route: 042
     Dates: start: 20250801
  4. ETOPOSIDE PHOSPHATE [Suspect]
     Active Substance: ETOPOSIDE PHOSPHATE
     Indication: Metastases to skin
     Route: 042
     Dates: start: 20250801
  5. ETOPOSIDE PHOSPHATE [Suspect]
     Active Substance: ETOPOSIDE PHOSPHATE
     Indication: Diffuse large B-cell lymphoma
     Route: 042
     Dates: start: 20250822, end: 20250822
  6. ETOPOSIDE PHOSPHATE [Suspect]
     Active Substance: ETOPOSIDE PHOSPHATE
     Indication: Metastasis
     Route: 042
     Dates: start: 20250822, end: 20250822
  7. ETOPOSIDE PHOSPHATE [Suspect]
     Active Substance: ETOPOSIDE PHOSPHATE
     Indication: Metastases to central nervous system
     Route: 042
     Dates: start: 20250822, end: 20250822
  8. ETOPOSIDE PHOSPHATE [Suspect]
     Active Substance: ETOPOSIDE PHOSPHATE
     Indication: Metastases to skin
     Route: 042
     Dates: start: 20250822, end: 20250822
  9. VINCRISTINE [Suspect]
     Active Substance: VINCRISTINE
     Indication: Metastasis
     Route: 042
     Dates: start: 20250707, end: 20250822
  10. VINCRISTINE [Suspect]
     Active Substance: VINCRISTINE
     Indication: Diffuse large B-cell lymphoma
     Route: 042
     Dates: start: 20250707, end: 20250822
  11. VINCRISTINE [Suspect]
     Active Substance: VINCRISTINE
     Indication: Metastases to central nervous system
     Route: 042
     Dates: start: 20250707, end: 20250822
  12. VINCRISTINE [Suspect]
     Active Substance: VINCRISTINE
     Indication: Metastases to skin
     Route: 042
     Dates: start: 20250707, end: 20250822
  13. VINCRISTINE [Suspect]
     Active Substance: VINCRISTINE
     Indication: Metastasis
     Route: 042
     Dates: start: 20250801
  14. VINCRISTINE [Suspect]
     Active Substance: VINCRISTINE
     Indication: Diffuse large B-cell lymphoma
     Route: 042
     Dates: start: 20250801
  15. VINCRISTINE [Suspect]
     Active Substance: VINCRISTINE
     Indication: Metastases to central nervous system
     Route: 042
     Dates: start: 20250801
  16. VINCRISTINE [Suspect]
     Active Substance: VINCRISTINE
     Indication: Metastases to skin
     Route: 042
     Dates: start: 20250801
  17. VINCRISTINE [Suspect]
     Active Substance: VINCRISTINE
     Indication: Metastasis
     Route: 042
     Dates: start: 20250822
  18. VINCRISTINE [Suspect]
     Active Substance: VINCRISTINE
     Indication: Diffuse large B-cell lymphoma
     Route: 042
     Dates: start: 20250822
  19. VINCRISTINE [Suspect]
     Active Substance: VINCRISTINE
     Indication: Metastases to central nervous system
     Route: 042
     Dates: start: 20250822
  20. VINCRISTINE [Suspect]
     Active Substance: VINCRISTINE
     Indication: Metastases to skin
     Route: 042
     Dates: start: 20250822
  21. CYCLOPHOSPHAMIDE [Suspect]
     Active Substance: CYCLOPHOSPHAMIDE
     Indication: Metastases to skin
     Route: 042
     Dates: start: 20250707, end: 20250822
  22. CYCLOPHOSPHAMIDE [Suspect]
     Active Substance: CYCLOPHOSPHAMIDE
     Indication: Metastases to central nervous system
     Route: 042
     Dates: start: 20250707, end: 20250822
  23. CYCLOPHOSPHAMIDE [Suspect]
     Active Substance: CYCLOPHOSPHAMIDE
     Indication: Diffuse large B-cell lymphoma
     Route: 042
     Dates: start: 20250707, end: 20250822
  24. CYCLOPHOSPHAMIDE [Suspect]
     Active Substance: CYCLOPHOSPHAMIDE
     Indication: Metastasis
     Route: 042
     Dates: start: 20250707, end: 20250822
  25. CYCLOPHOSPHAMIDE [Suspect]
     Active Substance: CYCLOPHOSPHAMIDE
     Indication: Metastases to skin
     Route: 042
     Dates: start: 20250801
  26. CYCLOPHOSPHAMIDE [Suspect]
     Active Substance: CYCLOPHOSPHAMIDE
     Indication: Metastases to central nervous system
     Route: 042
     Dates: start: 20250801
  27. CYCLOPHOSPHAMIDE [Suspect]
     Active Substance: CYCLOPHOSPHAMIDE
     Indication: Diffuse large B-cell lymphoma
     Route: 042
     Dates: start: 20250801
  28. CYCLOPHOSPHAMIDE [Suspect]
     Active Substance: CYCLOPHOSPHAMIDE
     Indication: Metastasis
     Route: 042
     Dates: start: 20250801
  29. CYCLOPHOSPHAMIDE [Suspect]
     Active Substance: CYCLOPHOSPHAMIDE
     Indication: Metastases to skin
     Route: 042
     Dates: start: 20250822
  30. CYCLOPHOSPHAMIDE [Suspect]
     Active Substance: CYCLOPHOSPHAMIDE
     Indication: Metastases to central nervous system
     Route: 042
     Dates: start: 20250822
  31. CYCLOPHOSPHAMIDE [Suspect]
     Active Substance: CYCLOPHOSPHAMIDE
     Indication: Diffuse large B-cell lymphoma
     Route: 042
     Dates: start: 20250822
  32. CYCLOPHOSPHAMIDE [Suspect]
     Active Substance: CYCLOPHOSPHAMIDE
     Indication: Metastasis
     Route: 042
     Dates: start: 20250822
  33. MABTHERA [Suspect]
     Active Substance: RITUXIMAB
     Indication: Metastases to central nervous system
     Route: 042
     Dates: start: 20250707, end: 20250707
  34. MABTHERA [Suspect]
     Active Substance: RITUXIMAB
     Indication: Diffuse large B-cell lymphoma
     Route: 042
     Dates: start: 20250707, end: 20250707
  35. MABTHERA [Suspect]
     Active Substance: RITUXIMAB
     Indication: Metastasis
     Route: 042
     Dates: start: 20250707, end: 20250707
  36. MABTHERA [Suspect]
     Active Substance: RITUXIMAB
     Indication: Metastases to skin
     Route: 042
     Dates: start: 20250707, end: 20250707
  37. MABTHERA [Suspect]
     Active Substance: RITUXIMAB
     Indication: Metastases to central nervous system
     Route: 058
     Dates: start: 20250801, end: 20250822
  38. MABTHERA [Suspect]
     Active Substance: RITUXIMAB
     Indication: Diffuse large B-cell lymphoma
     Route: 058
     Dates: start: 20250801, end: 20250822
  39. MABTHERA [Suspect]
     Active Substance: RITUXIMAB
     Indication: Metastasis
     Route: 058
     Dates: start: 20250801, end: 20250822
  40. MABTHERA [Suspect]
     Active Substance: RITUXIMAB
     Indication: Metastases to skin
     Route: 058
     Dates: start: 20250801, end: 20250822
  41. MABTHERA [Suspect]
     Active Substance: RITUXIMAB
     Indication: Metastases to central nervous system
     Route: 058
     Dates: start: 20250822
  42. MABTHERA [Suspect]
     Active Substance: RITUXIMAB
     Indication: Diffuse large B-cell lymphoma
     Route: 058
     Dates: start: 20250822
  43. MABTHERA [Suspect]
     Active Substance: RITUXIMAB
     Indication: Metastasis
     Route: 058
     Dates: start: 20250822
  44. MABTHERA [Suspect]
     Active Substance: RITUXIMAB
     Indication: Metastases to skin
     Route: 058
     Dates: start: 20250822
  45. METHOTREXATE (METHOTREXATE SODIUM) [Suspect]
     Active Substance: METHOTREXATE SODIUM
     Indication: Metastasis
     Route: 042
     Dates: start: 20250709, end: 20250709
  46. METHOTREXATE (METHOTREXATE SODIUM) [Suspect]
     Active Substance: METHOTREXATE SODIUM
     Indication: Metastases to skin
     Route: 042
     Dates: start: 20250709, end: 20250709
  47. METHOTREXATE (METHOTREXATE SODIUM) [Suspect]
     Active Substance: METHOTREXATE SODIUM
     Indication: Diffuse large B-cell lymphoma
     Route: 042
     Dates: start: 20250709, end: 20250709
  48. METHOTREXATE (METHOTREXATE SODIUM) [Suspect]
     Active Substance: METHOTREXATE SODIUM
     Indication: Metastases to central nervous system
     Route: 042
     Dates: start: 20250709, end: 20250709
  49. METHOTREXATE (METHOTREXATE SODIUM) [Suspect]
     Active Substance: METHOTREXATE SODIUM
     Indication: Metastasis
     Route: 042
     Dates: start: 20250802, end: 20250802
  50. METHOTREXATE (METHOTREXATE SODIUM) [Suspect]
     Active Substance: METHOTREXATE SODIUM
     Indication: Metastases to skin
     Route: 042
     Dates: start: 20250802, end: 20250802
  51. METHOTREXATE (METHOTREXATE SODIUM) [Suspect]
     Active Substance: METHOTREXATE SODIUM
     Indication: Diffuse large B-cell lymphoma
     Route: 042
     Dates: start: 20250802, end: 20250802
  52. METHOTREXATE (METHOTREXATE SODIUM) [Suspect]
     Active Substance: METHOTREXATE SODIUM
     Indication: Metastases to central nervous system
     Route: 042
     Dates: start: 20250802, end: 20250802
  53. OXAZEPAM [Concomitant]
     Active Substance: OXAZEPAM
  54. KARDEGIC [Concomitant]
     Active Substance: ASPIRIN DL-LYSINE
  55. EZETIMIBE [Concomitant]
     Active Substance: EZETIMIBE
     Dosage: 1 TABLET IN THE EVENING?DAILY DOSE: 1 DOSAGE FORM
  56. GLICLAZIDE [Concomitant]
     Active Substance: GLICLAZIDE
     Dosage: 2 TABLETS IN THE MORNING?DAILY DOSE: 2 DOSAGE FORM
  57. CLOPIDOGREL [Concomitant]
     Active Substance: CLOPIDOGREL BISULFATE
     Dosage: 1 TABLET IN THE MORNING ?DAILY DOSE: 1 DOSAGE FORM
     Dates: start: 202507
  58. ISOPTIN [Concomitant]
     Active Substance: VERAPAMIL HYDROCHLORIDE
     Dosage: 1 CAPSULE IN THE MORNING?DAILY DOSE: 1 DOSAGE FORM
  59. SITAGLIPTIN [Concomitant]
     Active Substance: SITAGLIPTIN
     Dosage: 1 TABLET IN THE MORNING?DAILY DOSE: 1 DOSAGE FORM
  60. JARDIANCE [Concomitant]
     Active Substance: EMPAGLIFLOZIN
     Dosage: 1 TABLET IN THE MORNING?DAILY DOSE: 1 DOSAGE FORM
  61. ROSUVASTATIN [Concomitant]
     Active Substance: ROSUVASTATIN
     Dosage: 5 MG IN THE EVENING?DAILY DOSE: 5 MILLIGRAM
  62. BACTRIM [Concomitant]
     Active Substance: SULFAMETHOXAZOLE\TRIMETHOPRIM
  63. Solupred [Concomitant]
     Indication: Metastases to central nervous system
  64. Solupred [Concomitant]
     Indication: Metastasis
  65. Solupred [Concomitant]
     Indication: Diffuse large B-cell lymphoma
  66. Solupred [Concomitant]
     Indication: Metastases to skin
  67. Solupred [Concomitant]
     Indication: Metastases to central nervous system
  68. Solupred [Concomitant]
     Indication: Metastasis
  69. Solupred [Concomitant]
     Indication: Diffuse large B-cell lymphoma
  70. Solupred [Concomitant]
     Indication: Metastases to skin
  71. VALACYCLOVIR HYDROCHLORIDE [Concomitant]
     Active Substance: VALACYCLOVIR HYDROCHLORIDE

REACTIONS (5)
  - Septic shock [Recovering/Resolving]
  - Multiple organ dysfunction syndrome [Unknown]
  - Cholestasis [Unknown]
  - Thrombocytopenia [Unknown]
  - Neurotoxicity [Unknown]

NARRATIVE: CASE EVENT DATE: 20250825
